FAERS Safety Report 5682324-3 (Version None)
Quarter: 2008Q1

REPORT INFORMATION
  Report Type: 
  Country: None (occurrence: None)
  Receive Date: 20080327
  Receipt Date: 20071003
  Transmission Date: 20080703
  Serious: No
  Sender: FDA-Public Use
  Company Number: US-BAUSCH-2007BL003586

PATIENT
  Age: 82 Year
  Sex: Female

DRUGS (1)
  1. ALREX [Suspect]
     Indication: CONJUNCTIVITIS
     Route: 047
     Dates: start: 20070925, end: 20070930

REACTIONS (3)
  - ERYTHEMA OF EYELID [None]
  - EYELID OEDEMA [None]
  - URTICARIA [None]
